FAERS Safety Report 7804924-4 (Version None)
Quarter: 2011Q4

REPORT INFORMATION
  Report Type: 
  Country: None (occurrence: None)
  Receive Date: 20111010
  Receipt Date: 20111004
  Transmission Date: 20120403
  Serious: Yes (Other)
  Sender: FDA-Public Use
  Company Number: DE-B.I. PHARMACEUTICALS,INC./RIDGEFIELD-2011-DE-05309DE

PATIENT
  Sex: Female
  Weight: 100 kg

DRUGS (3)
  1. AGGRENOX [Suspect]
     Dosage: 1 ANZ
     Dates: start: 20060101, end: 20110101
  2. CORTISONE ACETATE [Concomitant]
     Dosage: 80 MG
  3. OXYGEN [Concomitant]

REACTIONS (2)
  - PULMONARY FIBROSIS [None]
  - BEDRIDDEN [None]
